FAERS Safety Report 11526555 (Version 1)
Quarter: 2015Q3

REPORT INFORMATION
  Report Type: Spontaneous
  Country: US (occurrence: US)
  Receive Date: 20150903
  Receipt Date: 20150903
  Transmission Date: 20151125
  Serious: No
  Sender: FDA-Public Use
  Company Number: US-ELI_LILLY_AND_COMPANY-US201310007560

PATIENT
  Sex: Female
  Weight: 85.71 kg

DRUGS (1)
  1. CYMBALTA [Suspect]
     Active Substance: DULOXETINE HYDROCHLORIDE
     Indication: PAIN IN EXTREMITY
     Dosage: 20 MG, QD
     Route: 048
     Dates: start: 20130915, end: 20130917

REACTIONS (2)
  - Malaise [Unknown]
  - Drug ineffective [Unknown]
